FAERS Safety Report 14355615 (Version 6)
Quarter: 2019Q2

REPORT INFORMATION
  Report Type: Spontaneous
  Country: US (occurrence: US)
  Receive Date: 20180105
  Receipt Date: 20190628
  Transmission Date: 20190711
  Serious: Yes (Hospitalization)
  Sender: FDA-Public Use
  Company Number: US-PFIZER INC-2018003671

PATIENT
  Sex: Female
  Weight: 61 kg

DRUGS (1)
  1. XELJANZ [Suspect]
     Active Substance: TOFACITINIB CITRATE
     Indication: RHEUMATOID ARTHRITIS
     Dosage: 5 MG, 2X/DAY (IN THE MORNING AND IN THE EVENING)

REACTIONS (7)
  - Decreased appetite [Unknown]
  - Faeces hard [Not Recovered/Not Resolved]
  - Diarrhoea [Unknown]
  - Cough [Unknown]
  - Dyspnoea [Unknown]
  - Drug ineffective [Not Recovered/Not Resolved]
  - Malaise [Not Recovered/Not Resolved]
